FAERS Safety Report 10748111 (Version 2)
Quarter: 2015Q1

REPORT INFORMATION
  Report Type: Spontaneous
  Country: US (occurrence: US)
  Receive Date: 20150129
  Receipt Date: 20150225
  Transmission Date: 20150721
  Serious: No
  Sender: FDA-Public Use
  Company Number: US-PFIZER INC-2015033402

PATIENT
  Age: 67 Year
  Sex: Female

DRUGS (2)
  1. GENTIAN VIOLET [Suspect]
     Active Substance: GENTIAN VIOLET
     Dosage: SOLUTION
  2. CELEBREX [Suspect]
     Active Substance: CELECOXIB
     Dosage: UNK

REACTIONS (1)
  - Drug hypersensitivity [Unknown]
